FAERS Safety Report 24281155 (Version 4)
Quarter: 2024Q3

REPORT INFORMATION
  Report Type: Spontaneous
  Country: AU (occurrence: AU)
  Receive Date: 20240904
  Receipt Date: 20240920
  Transmission Date: 20241017
  Serious: Yes (Other)
  Sender: MYLAN
  Company Number: AU-MYLANLABS-2024M1079262

PATIENT
  Sex: Male

DRUGS (3)
  1. CLOZARIL [Suspect]
     Active Substance: CLOZAPINE
     Indication: Schizophrenia
     Dosage: UNK
     Route: 048
     Dates: start: 20161126
  2. CLOZARIL [Suspect]
     Active Substance: CLOZAPINE
     Dosage: 250 MILLIGRAM, QD (100 MG MANE (MORNING), 150 MG NOCTE (NIGHT))
     Route: 065
     Dates: end: 20240826
  3. Bioglan sleep [Concomitant]
     Indication: Sleep disorder
     Dosage: UNK
     Route: 065
     Dates: start: 202408, end: 202408

REACTIONS (5)
  - Neutropenia [Recovered/Resolved]
  - Rhinorrhoea [Unknown]
  - Red cell distribution width increased [Unknown]
  - White blood cell count decreased [Not Recovered/Not Resolved]
  - Eosinophil count decreased [Unknown]

NARRATIVE: CASE EVENT DATE: 20240101
